FAERS Safety Report 6610965-5 (Version None)
Quarter: 2010Q1

REPORT INFORMATION
  Report Type: 
  Country: None (occurrence: None)
  Receive Date: 20100222
  Receipt Date: 20100208
  Transmission Date: 20100710
  Serious: Yes (Death, Other)
  Sender: FDA-Public Use
  Company Number: 2010015970

PATIENT
  Sex: Male

DRUGS (1)
  1. FRAGMIN [Suspect]
     Indication: CORONARY ARTERY DISEASE
     Dosage: 5000 IU, 1X/DAY, INTRAVENOUS
     Route: 042
     Dates: start: 20100123

REACTIONS (2)
  - BLOOD PRESSURE INADEQUATELY CONTROLLED [None]
  - CARDIOGENIC SHOCK [None]
